FAERS Safety Report 7469212-7 (Version None)
Quarter: 2011Q2

REPORT INFORMATION
  Report Type: 
  Country: None (occurrence: None)
  Receive Date: 20110510
  Receipt Date: 20110425
  Transmission Date: 20111010
  Serious: Yes (Other)
  Sender: FDA-Public Use
  Company Number: US-JNJFOC-20110412363

PATIENT
  Age: 80 Year
  Sex: Female
  Weight: 86.18 kg

DRUGS (13)
  1. VISINE TEARS DRY EYE RELIEF [Suspect]
     Indication: DRY EYE
     Dosage: 1 DROP IN EACH EYE
     Route: 047
  2. NEXIUM [Concomitant]
     Indication: GASTROOESOPHAGEAL REFLUX DISEASE
     Route: 065
  3. AVAPRO [Concomitant]
     Indication: HYPERTENSION
     Route: 065
  4. SYNTHROID [Concomitant]
     Indication: HYPOTHYROIDISM
     Route: 065
  5. MULTI-VITAMINS [Concomitant]
     Indication: MEDICAL DIET
     Route: 065
  6. WELCHOL [Concomitant]
     Indication: BLOOD CHOLESTEROL INCREASED
     Route: 065
  7. ASPIRIN [Concomitant]
     Indication: ANTICOAGULANT THERAPY
     Route: 065
  8. ALPHAGAN [Concomitant]
     Indication: BORDERLINE GLAUCOMA
     Route: 065
  9. ASPIRIN [Concomitant]
     Indication: CEREBROVASCULAR ACCIDENT PROPHYLAXIS
     Route: 065
  10. TOPROL-XL [Concomitant]
     Indication: HYPERTENSION
     Route: 065
  11. ASPIRIN [Concomitant]
     Indication: ISCHAEMIC HEART DISEASE PROPHYLAXIS
     Route: 065
  12. CALTRATE [Concomitant]
     Indication: MEDICAL DIET
     Route: 065
  13. ZONISAMIDE [Concomitant]
     Indication: CONVULSION
     Route: 065

REACTIONS (3)
  - SKIN WARM [None]
  - PARAESTHESIA [None]
  - ERYTHEMA [None]
